FAERS Safety Report 13035107 (Version 1)
Quarter: 2016Q4

REPORT INFORMATION
  Report Type: Spontaneous
  Country: GB (occurrence: GB)
  Receive Date: 20161216
  Receipt Date: 20161216
  Transmission Date: 20170207
  Serious: Yes (Life-Threatening, Hospitalization)
  Sender: FDA-Public Use
  Company Number: GB-PFIZER INC-2016579338

PATIENT
  Age: 61 Year
  Sex: Male

DRUGS (4)
  1. MIRABEGRON [Concomitant]
     Active Substance: MIRABEGRON
     Dosage: 50 MG, 1X/DAY (IN THE MORNING)
     Route: 048
  2. CALCIUM CARBONATE W/COLECALCIFEROL//06588501/ [Concomitant]
     Dosage: 1 DF, 2X/DAY (COLECALCIFEROL 400UNIT / CALCIUM CARBONATE 1.25G)
     Route: 048
  3. PHENYTOIN SODIUM. [Suspect]
     Active Substance: PHENYTOIN SODIUM
     Indication: EPILEPSY
     Dosage: 325 MG, 1X/DAY (NIGHTLY)
     Route: 048
     Dates: start: 20070101
  4. XARELTO [Interacting]
     Active Substance: RIVAROXABAN
     Dosage: 20 MG, 1X/DAY (IN THE MORNING)
     Route: 048
     Dates: start: 20160701, end: 20160810

REACTIONS (2)
  - Deep vein thrombosis [Recovering/Resolving]
  - Inhibitory drug interaction [Unknown]

NARRATIVE: CASE EVENT DATE: 20160810
